FAERS Safety Report 7734680-X (Version None)
Quarter: 2011Q3

REPORT INFORMATION
  Report Type: 
  Country: None (occurrence: None)
  Receive Date: 20110907
  Receipt Date: 20110829
  Transmission Date: 20111222
  Serious: Yes (Life-Threatening, Hospitalization, Other)
  Sender: FDA-Public Use
  Company Number: US-ACTELION-A-US2011-52884

PATIENT

DRUGS (10)
  1. OXYGEN [Concomitant]
  2. LEXAPRO [Concomitant]
  3. SPIRIVA [Concomitant]
  4. SINGULAIR [Concomitant]
  5. ADVAIR DISKUS 100/50 [Concomitant]
  6. LETAIRIS [Concomitant]
  7. COUMADIN [Concomitant]
  8. COREG [Concomitant]
  9. VENTAVIS [Suspect]
     Indication: PULMONARY ARTERIAL HYPERTENSION
     Dosage: 5 ?G, UNK
     Route: 055
     Dates: start: 20071008, end: 20110101
  10. VALIUM [Concomitant]

REACTIONS (4)
  - FALL [None]
  - RADIUS FRACTURE [None]
  - CONTUSION [None]
  - EXCORIATION [None]
